FAERS Safety Report 12890073 (Version 2)
Quarter: 2017Q1

REPORT INFORMATION
  Report Type: Spontaneous
  Country: US (occurrence: US)
  Receive Date: 20161027
  Receipt Date: 20170224
  Transmission Date: 20170428
  Serious: Yes (Death, Hospitalization)
  Sender: FDA-Public Use
  Company Number: US-JNJFOC-20161023419

PATIENT
  Age: 84 Year
  Sex: Female

DRUGS (4)
  1. XARELTO [Suspect]
     Active Substance: RIVAROXABAN
     Indication: ANTICOAGULANT THERAPY
     Route: 048
     Dates: start: 20131014, end: 20131121
  2. XARELTO [Suspect]
     Active Substance: RIVAROXABAN
     Indication: ATRIAL FIBRILLATION
     Route: 048
     Dates: start: 20131014, end: 20131121
  3. XARELTO [Suspect]
     Active Substance: RIVAROXABAN
     Indication: EMBOLISM
     Route: 048
     Dates: start: 20131014, end: 20131121
  4. XARELTO [Suspect]
     Active Substance: RIVAROXABAN
     Indication: CEREBROVASCULAR ACCIDENT PROPHYLAXIS
     Route: 048
     Dates: start: 20131014, end: 20131121

REACTIONS (5)
  - Chronic kidney disease [Unknown]
  - Intestinal obstruction [Fatal]
  - Lower gastrointestinal haemorrhage [Unknown]
  - Atrial fibrillation [Fatal]
  - Dyslipidaemia [Fatal]

NARRATIVE: CASE EVENT DATE: 201311
